FAERS Safety Report 4354080-2 (Version None)
Quarter: 2004Q2

REPORT INFORMATION
  Report Type: 
  Country: None (occurrence: None)
  Receive Date: 20040503
  Receipt Date: 20040416
  Transmission Date: 20050107
  Serious: Yes (Hospitalization)
  Sender: FDA-Public Use
  Company Number: DSA_24249-2004

PATIENT
  Age: 32 Year
  Sex: Female

DRUGS (3)
  1. LORAZEPAM [Suspect]
     Dates: start: 20040409, end: 20040409
  2. ALCOHOL [Suspect]
     Dates: start: 20040409, end: 20040409
  3. CIPRAMIL [Suspect]
     Dosage: 1600 MG ONCE PO
     Route: 048
     Dates: start: 20040409, end: 20040409

REACTIONS (4)
  - ALCOHOL USE [None]
  - FATIGUE [None]
  - INTENTIONAL OVERDOSE [None]
  - MYDRIASIS [None]
